FAERS Safety Report 9605861 (Version 2)
Quarter: 2013Q4

REPORT INFORMATION
  Report Type: Spontaneous
  Country: US (occurrence: US)
  Receive Date: 20131008
  Receipt Date: 20131227
  Transmission Date: 20140711
  Serious: No
  Sender: FDA-Public Use
  Company Number: US-009507513-1309USA011015

PATIENT
  Age: 9 Year
  Sex: Female

DRUGS (1)
  1. PROVENTIL [Suspect]
     Indication: ASTHMA
     Dosage: AS NEEDED
     Route: 055

REACTIONS (2)
  - Drug dose omission [Unknown]
  - Product quality issue [Unknown]
